FAERS Safety Report 14738353 (Version 1)
Quarter: 2018Q2

REPORT INFORMATION
  Report Type: Spontaneous
  Country: US (occurrence: US)
  Receive Date: 20180409
  Receipt Date: 20180409
  Transmission Date: 20180711
  Serious: No
  Sender: FDA-Public Use
  Company Number: US-IPSEN BIOPHARMACEUTICALS, INC.-2018-01588

PATIENT
  Age: 56 Year
  Sex: Female

DRUGS (20)
  1. T3 [Concomitant]
     Active Substance: LIOTHYRONINE SODIUM
  2. VITAMIN B12 [Concomitant]
     Active Substance: CYANOCOBALAMIN
  3. DYSPORT [Suspect]
     Active Substance: ABOBOTULINUMTOXINA
     Dosage: NOT REPORTED
     Dates: start: 20161121, end: 20161121
  4. VITAMIN D2 [Concomitant]
     Active Substance: ERGOCALCIFEROL
     Dosage: 50,000 UNIT
  5. 0.0375 ESTRADIOL TRANSDERMAL SYSTEM [Concomitant]
     Dosage: 1 PATCH, 2 TIMES A WEEK
  6. TURMERIC CURCUMIN [Concomitant]
     Active Substance: HERBALS\TURMERIC
  7. SCULPTRA [Suspect]
     Active Substance: POLYLACTIDE, L-
     Route: 058
     Dates: start: 20170217, end: 20170217
  8. SINGULAIR [Concomitant]
     Active Substance: MONTELUKAST SODIUM
  9. XOPENEX HFA [Concomitant]
     Active Substance: LEVALBUTEROL TARTRATE
     Dosage: 45 MCG INHALER
  10. ADRESET [Concomitant]
  11. PROGESTERONE. [Concomitant]
     Active Substance: PROGESTERONE
  12. VITAMIN C [Concomitant]
     Active Substance: ASCORBIC ACID
  13. PANTOTHENIC ACID (B5) [Concomitant]
  14. TART CHERRY [Concomitant]
  15. DYSPORT [Suspect]
     Active Substance: ABOBOTULINUMTOXINA
     Indication: SKIN COSMETIC PROCEDURE
     Dosage: NOT REPORTED
     Dates: start: 20161109, end: 20161109
  16. SCULPTRA [Suspect]
     Active Substance: POLYLACTIDE, L-
     Indication: SKIN COSMETIC PROCEDURE
     Route: 058
     Dates: start: 20161109, end: 20161109
  17. RESTYLANE [Suspect]
     Active Substance: HYALURONIC ACID
     Indication: SKIN COSMETIC PROCEDURE
     Dosage: NOT REPORTED
     Dates: start: 20161121, end: 20161121
  18. QVAR [Concomitant]
     Active Substance: BECLOMETHASONE DIPROPIONATE
     Dosage: 40 MCG INHALER, PUFFS, 2XDAY
  19. ASPIRIN. [Concomitant]
     Active Substance: ASPIRIN
     Dosage: 1 EVERY OTHER DAY
  20. RELORA [Concomitant]

REACTIONS (10)
  - Nodule [Recovered/Resolved]
  - Nodule [Recovering/Resolving]
  - Facial asymmetry [Recovering/Resolving]
  - Contusion [Recovered/Resolved]
  - Lip swelling [Recovering/Resolving]
  - Contusion [Recovering/Resolving]
  - Nodule [Recovered/Resolved]
  - Papule [Recovering/Resolving]
  - Infection [Unknown]
  - Inappropriate schedule of drug administration [Unknown]

NARRATIVE: CASE EVENT DATE: 201611
